FAERS Safety Report 25100845 (Version 2)
Quarter: 2025Q1

REPORT INFORMATION
  Report Type: Spontaneous
  Country: US (occurrence: US)
  Receive Date: 20250320
  Receipt Date: 20250326
  Transmission Date: 20250409
  Serious: Yes (Other)
  Sender: BAUSCH AND LOMB
  Company Number: US-MLMSERVICE-20250311-PI439718-00152-3

PATIENT
  Age: 79 Year
  Sex: Female

DRUGS (2)
  1. FLUOROURACIL [Suspect]
     Active Substance: FLUOROURACIL
     Indication: Squamous cell carcinoma
     Dosage: CHEMOWRAPS ON LOWER EXTREMITIES
     Route: 061
  2. FLUOROURACIL [Suspect]
     Active Substance: FLUOROURACIL
     Indication: Actinic keratosis

REACTIONS (2)
  - Paradoxical drug reaction [Not Recovered/Not Resolved]
  - Therapy non-responder [Unknown]
